FAERS Safety Report 24398931 (Version 2)
Quarter: 2024Q4

REPORT INFORMATION
  Report Type: Spontaneous
  Country: US (occurrence: US)
  Receive Date: 20241004
  Receipt Date: 20241118
  Transmission Date: 20250114
  Serious: No
  Sender: MYLAN
  Company Number: US-MYLANLABS-2024M1087491

PATIENT
  Sex: Male
  Weight: 81.64 kg

DRUGS (2)
  1. CLONIDINE TRANSDERMAL SYSTEM [Suspect]
     Active Substance: CLONIDINE
     Indication: Blood pressure abnormal
     Dosage: 0.2 MILLIGRAM, QD (PER DAY, ONE PATCH PER WEEK)
     Route: 062
     Dates: start: 20240925
  2. AMLODIPINE [Concomitant]
     Active Substance: AMLODIPINE BESYLATE
     Indication: Blood pressure abnormal
     Dosage: 12.5 MILLIGRAM, QD (ONCE A DAY)
     Route: 065

REACTIONS (6)
  - Application site erosion [Unknown]
  - Application site pain [Unknown]
  - Application site pruritus [Unknown]
  - Urticaria [Unknown]
  - Application site erythema [Unknown]
  - Product adhesion issue [Unknown]
